FAERS Safety Report 14229504 (Version 1)
Quarter: 2017Q4

REPORT INFORMATION
  Report Type: Spontaneous
  Country: FR (occurrence: FR)
  Receive Date: 20171128
  Receipt Date: 20171128
  Transmission Date: 20180321
  Serious: Yes (Hospitalization, Other)
  Sender: FDA-Public Use
  Company Number: FR-ACCORD-061472

PATIENT
  Age: 63 Year
  Sex: Female

DRUGS (4)
  1. OXALIPLATIN ACCORD [Suspect]
     Active Substance: OXALIPLATIN
     Indication: ADENOCARCINOMA GASTRIC
     Dosage: STRENGTH: 5 MG/ML
     Route: 042
     Dates: start: 20170927
  2. DOCETAXEL ACCORD [Suspect]
     Active Substance: DOCETAXEL
     Indication: ADENOCARCINOMA GASTRIC
     Route: 042
     Dates: start: 20170927
  3. FLUOROURACIL ACCORD [Suspect]
     Active Substance: FLUOROURACIL
     Indication: ADENOCARCINOMA GASTRIC
     Dosage: STRENGTH: 50 MG/ML.?EVERY 48 HOURS.
     Route: 042
     Dates: start: 20170927
  4. APROVEL [Concomitant]
     Active Substance: IRBESARTAN
     Dosage: STRENGTH: 300 MG

REACTIONS (9)
  - Hyponatraemia [Recovered/Resolved]
  - Vomiting [Not Recovered/Not Resolved]
  - Seizure [Recovered/Resolved]
  - Coma [Recovered/Resolved]
  - Diarrhoea [Not Recovered/Not Resolved]
  - Blood phosphorus decreased [Recovered/Resolved]
  - Off label use [None]
  - Hypokalaemia [Recovered/Resolved]
  - Urinary tract infection [None]

NARRATIVE: CASE EVENT DATE: 20170930
